FAERS Safety Report 19787154 (Version 1)
Quarter: 2021Q3

REPORT INFORMATION
  Report Type: Spontaneous
  Country: CN (occurrence: CN)
  Receive Date: 20210903
  Receipt Date: 20210903
  Transmission Date: 20211014
  Serious: Yes (Hospitalization, Disabling)
  Sender: FDA-Public Use
  Company Number: CN-ALLERGAN-2131064US

PATIENT
  Sex: Male
  Weight: 75 kg

DRUGS (2)
  1. CEFTAZIDIME;AVIBACTAM ? BP [Suspect]
     Active Substance: AVIBACTAM SODIUM\CEFTAZIDIME
     Indication: INFECTION
     Dosage: 2.5 G, 2X/DAY (Q12H)
     Route: 041
     Dates: start: 20210728, end: 20210803
  2. GLUCOSE [Concomitant]
     Active Substance: DEXTROSE
     Indication: VEHICLE SOLUTION USE
     Dosage: 100 ML, 2X/DAY (Q12H)
     Route: 041
     Dates: start: 20210728, end: 20210803

REACTIONS (2)
  - Drug-induced liver injury [Recovering/Resolving]
  - Myasthenia gravis [Unknown]

NARRATIVE: CASE EVENT DATE: 2021
